FAERS Safety Report 17459999 (Version 2)
Quarter: 2020Q1

REPORT INFORMATION
  Report Type: Spontaneous
  Country: CN (occurrence: CN)
  Receive Date: 20200226
  Receipt Date: 20200303
  Transmission Date: 20200409
  Serious: Yes (Other)
  Sender: FDA-Public Use
  Company Number: CN-PFIZER INC-2020069770

PATIENT
  Age: 82 Year
  Sex: Male

DRUGS (6)
  1. CANCIDAS [Concomitant]
     Active Substance: CASPOFUNGIN ACETATE
     Dosage: 50 MG, 1X/DAY
     Route: 041
     Dates: start: 20131214
  2. TYGACIL [Suspect]
     Active Substance: TIGECYCLINE
     Dosage: 50 MG, 2X/DAY (ONCE EVERY 12 H)
     Route: 041
     Dates: start: 20131214, end: 20131223
  3. TYGACIL [Suspect]
     Active Substance: TIGECYCLINE
     Indication: SEPTIC SHOCK
     Dosage: 100 MG, 1X/DAY
     Route: 041
     Dates: start: 20131213, end: 20131213
  4. TYGACIL [Suspect]
     Active Substance: TIGECYCLINE
     Dosage: 50 MG, 1X/DAY
     Route: 041
     Dates: start: 20131224, end: 20131224
  5. MEROPENEM. [Concomitant]
     Active Substance: MEROPENEM
     Indication: SEPTIC SHOCK
     Dosage: 0.5 G, 4X/DAY (EVERY 6 H)
     Route: 041
     Dates: start: 20131213
  6. CANCIDAS [Concomitant]
     Active Substance: CASPOFUNGIN ACETATE
     Indication: SEPTIC SHOCK
     Dosage: 70 MG, 1X/DAY
     Route: 041
     Dates: start: 20131213, end: 20131213

REACTIONS (1)
  - Drug-induced liver injury [Recovering/Resolving]
